FAERS Safety Report 10142947 (Version 2)
Quarter: 2014Q4

REPORT INFORMATION
  Report Type: Spontaneous
  Country: US (occurrence: US)
  Receive Date: 20140430
  Receipt Date: 20141017
  Transmission Date: 20150528
  Serious: Yes (Other)
  Sender: FDA-Public Use
  Company Number: US-BAYER-2014-062540

PATIENT
  Sex: Female
  Weight: 90.7 kg

DRUGS (1)
  1. YAZ [Suspect]
     Active Substance: DROSPIRENONE\ETHINYL ESTRADIOL
     Indication: ACNE
     Dosage: UNK
     Dates: start: 2006, end: 2008

REACTIONS (4)
  - Injury [None]
  - Pain [None]
  - Thrombosis [None]
  - Deep vein thrombosis [None]
